FAERS Safety Report 9891237 (Version 1)
Quarter: 2014Q1

REPORT INFORMATION
  Report Type: Spontaneous
  Country: JP (occurrence: JP)
  Receive Date: 20140212
  Receipt Date: 20140212
  Transmission Date: 20141002
  Serious: Yes (Other)
  Sender: FDA-Public Use
  Company Number: JP-SA-2014SA015985

PATIENT
  Age: 86 Day
  Sex: Male

DRUGS (9)
  1. MAGNESIUM SULFATE [Suspect]
     Indication: MATERNAL EXPOSURE TIMING UNSPECIFIED
     Route: 064
  2. FUROSEMIDE [Suspect]
     Indication: PRODUCT USED FOR UNKNOWN INDICATION
     Route: 065
  3. MIDAZOLAM [Suspect]
     Indication: SEDATION
     Dosage: CONTINUOUS INFUSION
     Route: 065
  4. HYDROCORTISONE [Suspect]
     Indication: CARDIOPULMONARY FAILURE
     Dosage: SYSTEMIC
     Route: 065
  5. HYDROCORTISONE [Suspect]
     Indication: BRONCHOPULMONARY DYSPLASIA
     Dosage: SYSTEMIC
     Route: 065
  6. DEXAMETHASONE [Suspect]
     Indication: CARDIOPULMONARY FAILURE
     Dosage: SYSTEMIC
     Route: 065
  7. DEXAMETHASONE [Suspect]
     Indication: BRONCHOPULMONARY DYSPLASIA
     Dosage: SYSTEMIC
     Route: 065
  8. FENTANYL [Suspect]
     Indication: SEDATION
     Dosage: CONTINUOUS INFUSION
     Route: 065
  9. FLUTICASONE [Suspect]
     Indication: BRONCHOPULMONARY DYSPLASIA
     Route: 055

REACTIONS (7)
  - Humerus fracture [Recovered/Resolved]
  - Foetal exposure during pregnancy [Unknown]
  - C-reactive protein increased [Recovered/Resolved]
  - Local swelling [Recovered/Resolved]
  - Feeling hot [Recovered/Resolved]
  - Femur fracture [Recovered/Resolved]
  - Post-traumatic osteoporosis [Unknown]
